FAERS Safety Report 10740750 (Version 1)
Quarter: 2015Q1

REPORT INFORMATION
  Report Type: Spontaneous
  Country: PE (occurrence: None)
  Receive Date: 20150123
  Receipt Date: 20150123
  Transmission Date: 20150721
  Serious: Yes (Other)
  Sender: FDA-Public Use
  Company Number: 8006148

PATIENT
  Age: 45 Year
  Sex: Female

DRUGS (1)
  1. EUTIROX (LEVOTHYROXNE SODIUM) (125 MICROGRAM) (LEVOTHYROXINE SODIUM) [Suspect]
     Active Substance: LEVOTHYROXINE SODIUM
     Indication: THYROID DISORDER
     Dosage: 1 IN 24 HR
     Route: 048
     Dates: start: 200506

REACTIONS (1)
  - Neoplasm malignant [None]

NARRATIVE: CASE EVENT DATE: 201401
